FAERS Safety Report 23845218 (Version 1)
Quarter: 2024Q2

REPORT INFORMATION
  Report Type: Spontaneous
  Country: US (occurrence: None)
  Receive Date: 20240511
  Receipt Date: 20240511
  Transmission Date: 20240716
  Serious: No
  Sender: FDA-Public Use
  Company Number: 2024A109431

PATIENT
  Sex: Male

DRUGS (3)
  1. FARXIGA [Suspect]
     Active Substance: DAPAGLIFLOZIN PROPANEDIOL
     Indication: Chronic kidney disease
     Route: 048
  2. FARXIGA [Suspect]
     Active Substance: DAPAGLIFLOZIN PROPANEDIOL
     Indication: Chronic kidney disease
     Route: 048
  3. LOSARTAN [Concomitant]
     Active Substance: LOSARTAN

REACTIONS (6)
  - Glucose tolerance impaired [Unknown]
  - Pollakiuria [Unknown]
  - Fatigue [Unknown]
  - Hypotension [Unknown]
  - Drug ineffective [Unknown]
  - Therapy change [Unknown]
